FAERS Safety Report 15279380 (Version 1)
Quarter: 2018Q3

REPORT INFORMATION
  Report Type: Spontaneous
  Country: IL (occurrence: IL)
  Receive Date: 20180815
  Receipt Date: 20180815
  Transmission Date: 20181010
  Serious: Yes (Other)
  Sender: FDA-Public Use
  Company Number: IL-BAXTER-2018BAX021327

PATIENT
  Sex: Female

DRUGS (12)
  1. PERJETA [Suspect]
     Active Substance: PERTUZUMAB
     Indication: BREAST CANCER
     Dosage: PERJETA 420 MG/14 ML, SOLUTION, RECEIVED FIRST 2 TIMES ACCORDING TO THE PROTOCOL
     Route: 042
  2. DOCETAXEL HOSPIRA [Suspect]
     Active Substance: DOCETAXEL
     Indication: BREAST CANCER
     Dosage: DOCETAXEL 20MG/2ML AND 80MG/8ML, RECEIVED FIRST 2 TIMES ACCORDING TO THE PROTOCOL
     Route: 042
  3. NACL 0.9% INTRAVENOUS SOLUTION BP [Suspect]
     Active Substance: SODIUM CHLORIDE
     Dosage: VIAFLO SODIUM CHLORIDE 0.9% INJ 500 ML COMPOUNDED WITH DOCETAXEL HOSPIRA 20 MG/2ML AND 80 MG/8ML, TH
     Route: 042
  4. NACL 0.9% INTRAVENOUS SOLUTION BP [Suspect]
     Active Substance: SODIUM CHLORIDE
     Indication: MEDICATION DILUTION
     Dosage: NACL 0.9% 250 ML VIAFLO COMPOUNDED WITH HERCEPTIN, RECEIVED FIRST 2 TIMES ACCORDING TO THE PROTOCOL
     Route: 042
  5. HERCEPTIN [Suspect]
     Active Substance: TRASTUZUMAB
     Indication: BREAST CANCER
     Dosage: POWDER, RECEIVED FIRST 2 TIMES ACCORDING TO THE PROTOCOL
     Route: 042
  6. NACL 0.9% INTRAVENOUS SOLUTION BP [Suspect]
     Active Substance: SODIUM CHLORIDE
     Dosage: VIAFLO SODIUM CHLORIDE 0.9% INJ 500 ML COMPOUNDED WITH DOCETAXEL HOSPIRA 20 MG/2ML AND 80 MG/8ML, RE
     Route: 042
  7. HERCEPTIN [Suspect]
     Active Substance: TRASTUZUMAB
     Dosage: POWDER, THIRD TIME RECEIVING THE PREPARATION ACCORDING TO THE PROTOCOL
     Route: 042
  8. PERJETA [Suspect]
     Active Substance: PERTUZUMAB
     Dosage: PERJETA 420 MG/14 ML, SOLUTION, THIRD TIME RECEIVING THE PREPARATION ACCORDING TO THE PROTOCOL
     Route: 042
  9. DOCETAXEL HOSPIRA [Suspect]
     Active Substance: DOCETAXEL
     Dosage: DOCETAXEL 20MG/2ML AND 80MG/8ML, THIRD TIME RECEIVING THE PREPARATION ACCORDING TO THE PROTOCOL
     Route: 042
  10. NACL 0.9% INTRAVENOUS SOLUTION BP [Suspect]
     Active Substance: SODIUM CHLORIDE
     Dosage: NACL 0.9% 250 ML VIAFLO COMPOUNDED WITH PERJETA, RECEIVED FIRST 2 TIMES ACCORDING TO THE PROTOCOL
     Route: 042
  11. NACL 0.9% INTRAVENOUS SOLUTION BP [Suspect]
     Active Substance: SODIUM CHLORIDE
     Dosage: NACL 0.9% 250 ML VIAFLO COMPOUNDED WITH HERCEPTIN, THIRD TIME RECEIVING THE PREPARATION ACCORDING TO
     Route: 042
  12. NACL 0.9% INTRAVENOUS SOLUTION BP [Suspect]
     Active Substance: SODIUM CHLORIDE
     Dosage: NACL 0.9% 250 ML VIAFLO COMPOUNDED WITH PERJETA, THIRD TIME RECEIVING THE PREPARATION ACCORDING TO T
     Route: 042

REACTIONS (1)
  - Rash pruritic [Recovering/Resolving]
